FAERS Safety Report 7751319-8 (Version None)
Quarter: 2011Q3

REPORT INFORMATION
  Report Type: 
  Country: None (occurrence: None)
  Receive Date: 20110914
  Receipt Date: 20110913
  Transmission Date: 20111222
  Serious: Yes (Death, Hospitalization)
  Sender: FDA-Public Use
  Company Number: DE-BAYER-2011-085691

PATIENT
  Age: 47 Year
  Sex: Female
  Weight: 86 kg

DRUGS (1)
  1. GADAVIST [Suspect]
     Indication: NUCLEAR MAGNETIC RESONANCE IMAGING
     Dosage: 9 ML, ONCE
     Route: 042
     Dates: start: 20110908, end: 20110908

REACTIONS (5)
  - DYSPNOEA [None]
  - CONVULSION [None]
  - MYOCARDIAL INFARCTION [None]
  - GENERALISED ERYTHEMA [None]
  - PARAESTHESIA [None]
